FAERS Safety Report 24358032 (Version 3)
Quarter: 2024Q4

REPORT INFORMATION
  Report Type: Spontaneous
  Country: US (occurrence: US)
  Receive Date: 20240924
  Receipt Date: 20241111
  Transmission Date: 20250115
  Serious: No
  Sender: PFIZER
  Company Number: US-PFIZER INC-PV202400093231

PATIENT
  Age: 15 Year
  Sex: Male
  Weight: 38.6 kg

DRUGS (2)
  1. GENOTROPIN [Suspect]
     Active Substance: SOMATROPIN
     Indication: Short stature
     Dosage: 1.3 MG/DAY 7 DAYS/WEEK, INJECT 1.3 MG UNDER THE SKIN DAILY
     Route: 058
  2. GENOTROPIN [Suspect]
     Active Substance: SOMATROPIN
     Indication: Attention deficit hyperactivity disorder
     Dosage: 7 DAYS/WEEK

REACTIONS (2)
  - Thyroxine free decreased [Unknown]
  - Product prescribing error [Unknown]

NARRATIVE: CASE EVENT DATE: 20240530
